FAERS Safety Report 5806988-6 (Version None)
Quarter: 2008Q3

REPORT INFORMATION
  Report Type: 
  Country: None (occurrence: None)
  Receive Date: 20080708
  Receipt Date: 20080625
  Transmission Date: 20090109
  Serious: Yes (Death, Other)
  Sender: FDA-Public Use
  Company Number: 2008AL007855

PATIENT
  Age: 46 Year
  Sex: Male

DRUGS (8)
  1. DIAZEPAM [Suspect]
  2. PAREGORIC LIQUID USP (ALPHARMA) (PAREGORIC LIQUID USP (ALPHARMA)) [Suspect]
  3. ETHANOL [Concomitant]
  4. PAROXETINE HCL [Concomitant]
  5. DIPHENHYDRAMINE HCL [Concomitant]
  6. COCAINE [Concomitant]
  7. VENLAFAXINE HCL [Concomitant]
  8. TOPIRAMATE [Concomitant]

REACTIONS (2)
  - DRUG ABUSE [None]
  - DRUG TOXICITY [None]
